FAERS Safety Report 7401087-4 (Version None)
Quarter: 2011Q2

REPORT INFORMATION
  Report Type: 
  Country: None (occurrence: None)
  Receive Date: 20110407
  Receipt Date: 20110331
  Transmission Date: 20111010
  Serious: Yes (Other)
  Sender: FDA-Public Use
  Company Number: Z0001332C

PATIENT
  Sex: Male
  Weight: 103 kg

DRUGS (2)
  1. OFATUMUMAB [Suspect]
     Indication: RHEUMATOID ARTHRITIS
     Route: 042
     Dates: start: 20090604
  2. PLACEBO [Suspect]
     Indication: RHEUMATOID ARTHRITIS
     Route: 042
     Dates: start: 20081124, end: 20081208

REACTIONS (1)
  - CEREBROVASCULAR ACCIDENT [None]
